FAERS Safety Report 9726295 (Version 2)
Quarter: 2013Q4

REPORT INFORMATION
  Report Type: Spontaneous
  Country: US (occurrence: US)
  Receive Date: 20131203
  Receipt Date: 20131210
  Transmission Date: 20140711
  Serious: Yes (Hospitalization, Other)
  Sender: FDA-Public Use
  Company Number: US-ABBVIE-13P-163-1174101-00

PATIENT
  Age: 69 Year
  Sex: Male
  Weight: 67.65 kg

DRUGS (5)
  1. CREON [Suspect]
     Indication: PANCREATIC CARCINOMA
     Dosage: SEE NARRATIVE
     Dates: start: 201306, end: 201311
  2. PROTONIX [Concomitant]
     Indication: PRODUCT USED FOR UNKNOWN INDICATION
  3. MULTIVITAMIN [Concomitant]
     Indication: PRODUCT USED FOR UNKNOWN INDICATION
  4. CHEMOTHERAPEUTICS [Concomitant]
     Indication: PRODUCT USED FOR UNKNOWN INDICATION
  5. ZOSYN [Concomitant]
     Indication: DIVERTICULITIS

REACTIONS (8)
  - Intestinal perforation [Not Recovered/Not Resolved]
  - General physical health deterioration [Not Recovered/Not Resolved]
  - Abdominal pain [Not Recovered/Not Resolved]
  - Diverticulitis [Unknown]
  - Pyrexia [Unknown]
  - Pneumoperitoneum [Unknown]
  - Ascites [Unknown]
  - Recurrent cancer [Unknown]
